FAERS Safety Report 6744779-2 (Version None)
Quarter: 2010Q2

REPORT INFORMATION
  Report Type: 
  Country: None (occurrence: None)
  Receive Date: 20100527
  Receipt Date: 20100216
  Transmission Date: 20101027
  Serious: No
  Sender: FDA-Public Use
  Company Number: US-BRISTOL-MYERS SQUIBB COMPANY-14960843

PATIENT
  Age: 69 Year
  Sex: Male
  Weight: 111 kg

DRUGS (5)
  1. ONGLYZA [Suspect]
     Indication: TYPE 2 DIABETES MELLITUS
     Dosage: REDUCED TO 1/2 DOSE
     Route: 048
     Dates: start: 20100125
  2. GLIPIZIDE [Concomitant]
     Indication: TYPE 2 DIABETES MELLITUS
     Dosage: 2 TABLETS
  3. METFORMIN HYDROCHLORIDE [Concomitant]
     Indication: TYPE 2 DIABETES MELLITUS
     Dosage: METFORMIN ER 2 TABS
  4. SIMVASTIN [Concomitant]
  5. DIOVAN [Concomitant]

REACTIONS (2)
  - HEADACHE [None]
  - HEART RATE INCREASED [None]
